FAERS Safety Report 6709849-3 (Version None)
Quarter: 2010Q2

REPORT INFORMATION
  Report Type: 
  Country: None (occurrence: None)
  Receive Date: 20100504
  Receipt Date: 20100423
  Transmission Date: 20101027
  Serious: Yes (Death, Life-Threatening, Hospitalization, Other)
  Sender: FDA-Public Use
  Company Number: B0638719A

PATIENT
  Sex: Female
  Weight: 39 kg

DRUGS (6)
  1. TYKERB [Suspect]
     Indication: BREAST CANCER
     Dosage: 1250MG PER DAY
     Route: 048
     Dates: start: 20100216, end: 20100405
  2. XELODA [Concomitant]
     Route: 048
  3. XELODA [Concomitant]
     Dosage: 1800MG PER DAY
     Route: 048
     Dates: start: 20100316, end: 20100329
  4. MUCODYNE [Concomitant]
     Indication: COUGH
     Route: 048
  5. FUROSEMIDE [Concomitant]
     Indication: ASCITES
     Route: 048
     Dates: start: 20100104, end: 20100408
  6. ALDACTONE [Concomitant]
     Indication: ASCITES
     Route: 048
     Dates: start: 20100102, end: 20100408

REACTIONS (6)
  - ASCITES [None]
  - DIARRHOEA [None]
  - ELECTROCARDIOGRAM ABNORMAL [None]
  - HEPATIC FUNCTION ABNORMAL [None]
  - MALIGNANT ASCITES [None]
  - PALMAR-PLANTAR ERYTHRODYSAESTHESIA SYNDROME [None]
